FAERS Safety Report 25529645 (Version 1)
Quarter: 2025Q3

REPORT INFORMATION
  Report Type: Spontaneous
  Country: US (occurrence: US)
  Receive Date: 20250708
  Receipt Date: 20250708
  Transmission Date: 20251020
  Serious: No
  Sender: ELI LILLY AND COMPANY
  Company Number: US-ELI_LILLY_AND_COMPANY-US202507004805

PATIENT
  Age: 83 Year
  Sex: Female

DRUGS (8)
  1. FORTEO [Suspect]
     Active Substance: TERIPARATIDE
     Indication: Product used for unknown indication
     Route: 065
     Dates: start: 2021
  2. FORTEO [Suspect]
     Active Substance: TERIPARATIDE
     Indication: Product used for unknown indication
     Route: 065
     Dates: start: 2021
  3. FORTEO [Suspect]
     Active Substance: TERIPARATIDE
     Indication: Product used for unknown indication
     Route: 065
     Dates: start: 2021
  4. FORTEO [Suspect]
     Active Substance: TERIPARATIDE
     Route: 065
  5. FORTEO [Suspect]
     Active Substance: TERIPARATIDE
     Route: 065
  6. FORTEO [Suspect]
     Active Substance: TERIPARATIDE
     Route: 065
  7. FORTEO [Suspect]
     Active Substance: TERIPARATIDE
     Route: 065
  8. FORTEO [Suspect]
     Active Substance: TERIPARATIDE
     Route: 065

REACTIONS (2)
  - Incorrect product administration duration [Unknown]
  - Incorrect dose administered by device [Unknown]
